FAERS Safety Report 19428116 (Version 1)
Quarter: 2021Q2

REPORT INFORMATION
  Report Type: Spontaneous
  Country: DE (occurrence: DE)
  Receive Date: 20210617
  Receipt Date: 20210617
  Transmission Date: 20210717
  Serious: Yes (Other)
  Sender: FDA-Public Use
  Company Number: DE-TEVA-2021-DE-1924377

PATIENT
  Age: 74 Year
  Sex: Male
  Weight: 8 kg

DRUGS (7)
  1. ALLOPURINOL AL 300 [Concomitant]
     Dosage: 1 DOSAGE FORMS DAILY; 1 DOSAGE FORM IS 1 TABLET
     Dates: start: 201706
  2. CANDESARTAN HEUMANN 32 MG TABLETTEN [Concomitant]
     Dosage: 32 MILLIGRAM DAILY;
     Dates: start: 201906
  3. L?THYROX HEXAL 100 MIKROGRAMM TABL.I.KALENDERPACK. [Concomitant]
     Dates: start: 201306
  4. BISOPROLOL SANDOZ 5 MG [Concomitant]
     Dosage: 5 MILLIGRAM DAILY;
     Dates: start: 201706
  5. SERTRALIN?NEURAXPHARM 100 MG [Concomitant]
     Dosage: 100 MILLIGRAM DAILY;
     Dates: start: 201506
  6. ATORVASTATIN ABZ 40 MG FILMTABLETTEN [Suspect]
     Active Substance: ATORVASTATIN
     Dosage: 40 MILLIGRAM DAILY;
     Dates: start: 202104
  7. XIPAMID HEXAL 10 MG [Suspect]
     Active Substance: XIPAMIDE
     Dosage: 10 MILLIGRAM DAILY;
     Dates: start: 202102

REACTIONS (1)
  - Diverticulitis [Not Recovered/Not Resolved]

NARRATIVE: CASE EVENT DATE: 202105
